FAERS Safety Report 14531592 (Version 3)
Quarter: 2018Q2

REPORT INFORMATION
  Report Type: Spontaneous
  Country: DE (occurrence: DE)
  Receive Date: 20180214
  Receipt Date: 20180619
  Transmission Date: 20180711
  Serious: Yes (Other)
  Sender: FDA-Public Use
  Company Number: DE-MYLANLABS-2018M1009274

PATIENT
  Age: 77 Year
  Sex: Female
  Weight: 78 kg

DRUGS (15)
  1. TRANEXAMIC ACID. [Suspect]
     Active Substance: TRANEXAMIC ACID
     Dosage: 1 G, UNK
  2. NORADRENALIN                       /00127501/ [Interacting]
     Active Substance: NOREPINEPHRINE\NOREPINEPHRINE BITARTRATE
     Dosage: 1.0 UG/KG/MIN 10 HRS POST OPERATIVE
     Route: 065
  3. HEPARIN-RATIOPHARM [Interacting]
     Active Substance: HEPARIN SODIUM
     Indication: PRODUCT USED FOR UNKNOWN INDICATION
     Dosage: 5000 IU, UNK, 50000 IU (INTERNATIONAL UNIT) DAILY
     Route: 065
  4. HEPARIN-NATRIUM [Suspect]
     Active Substance: HEPARIN SODIUM
     Indication: PRODUCT USED FOR UNKNOWN INDICATION
     Dosage: 50000 IU, QD
  5. ASPIRIN. [Concomitant]
     Active Substance: ASPIRIN
     Indication: PRODUCT USED FOR UNKNOWN INDICATION
     Dosage: 100 MG, QD, 50000 IU (INTERNATIONAL UNIT) DAILY
  6. STEROFUNDIN [Concomitant]
     Active Substance: CALCIUM CHLORIDE\MAGNESIUM CHLORIDE\POTASSIUM CHLORIDE\SODIUM ACETATE\SODIUM CHLORIDE
     Indication: PRODUCT USED FOR UNKNOWN INDICATION
     Dosage: 1250 ML, UNK
  7. HEPARIN-NATRIUM [Suspect]
     Active Substance: HEPARIN SODIUM
     Dosage: UNK
  8. CUSTODIOL                          /04792301/ [Concomitant]
     Active Substance: CALCIUM CL\HISTIDINE\MAGNESIUM\MANNITOL\POTASSIUM\SODIUM CL\TRYPTOPHAN
     Indication: PRODUCT USED FOR UNKNOWN INDICATION
     Dosage: 950 ML, UNK
  9. METOPROLOL. [Concomitant]
     Active Substance: METOPROLOL
     Indication: PRODUCT USED FOR UNKNOWN INDICATION
     Dosage: 9 MG, QD, 1-0-1
  10. ATORVASTATIN [Concomitant]
     Active Substance: ATORVASTATIN
     Indication: PRODUCT USED FOR UNKNOWN INDICATION
     Dosage: 10 MG, QD, 50000 IU (INTERNATIONAL UNIT) DAILY
  11. AMLODIPINE [Concomitant]
     Active Substance: AMLODIPINE BESYLATE
     Indication: PRODUCT USED FOR UNKNOWN INDICATION
     Dosage: 2.5 MG, QD, 50000 IU (INTERNATIONAL UNIT) DAILY
  12. TRANEXAMIC ACID. [Suspect]
     Active Substance: TRANEXAMIC ACID
     Indication: PRODUCT USED FOR UNKNOWN INDICATION
     Dosage: 10 ML, UNK
  13. NORADRENALIN                       /00127501/ [Interacting]
     Active Substance: NOREPINEPHRINE\NOREPINEPHRINE BITARTRATE
     Indication: PRODUCT USED FOR UNKNOWN INDICATION
     Dosage: UP TO 0.35 UG/KG/MIN PERIOPERATIVE (7 SINGLE DOSES OF 10-20 UG)
  14. HEPARIN-NATRIUM [Suspect]
     Active Substance: HEPARIN SODIUM
     Dosage: UNK
  15. VALSARTAN/HCT [Concomitant]
     Active Substance: HYDROCHLOROTHIAZIDE\VALSARTAN
     Indication: PRODUCT USED FOR UNKNOWN INDICATION
     Dosage: 50000 IU, QD

REACTIONS (4)
  - Renal failure [Unknown]
  - Transaminases increased [Unknown]
  - Alanine aminotransferase increased [Unknown]
  - Therapeutic response decreased [Unknown]

NARRATIVE: CASE EVENT DATE: 20170823
